FAERS Safety Report 16083289 (Version 1)
Quarter: 2019Q1

REPORT INFORMATION
  Report Type: Report from Study
  Country: US (occurrence: US)
  Receive Date: 20190318
  Receipt Date: 20190318
  Transmission Date: 20190418
  Serious: Yes (Hospitalization)
  Sender: FDA-Public Use
  Company Number: US-GILEAD-2019-0396986

PATIENT
  Age: 72 Year
  Sex: Male

DRUGS (8)
  1. DILTIAZEM. [Concomitant]
     Active Substance: DILTIAZEM
  2. FUROSEMIDE. [Concomitant]
     Active Substance: FUROSEMIDE
  3. FLECAINIDE [Concomitant]
     Active Substance: FLECAINIDE
  4. AMBRISENTAN [Suspect]
     Active Substance: AMBRISENTAN
     Indication: PRODUCT USED FOR UNKNOWN INDICATION
     Dosage: 10 MG, QD
     Route: 065
  5. ELIQUIS [Concomitant]
     Active Substance: APIXABAN
  6. TADALAFIL. [Concomitant]
     Active Substance: TADALAFIL
  7. RANEXA [Concomitant]
     Active Substance: RANOLAZINE
  8. POTASSIUM CHLORIDE. [Concomitant]
     Active Substance: POTASSIUM CHLORIDE

REACTIONS (1)
  - Medical device implantation [Unknown]
